FAERS Safety Report 6202327-X (Version None)
Quarter: 2009Q2

REPORT INFORMATION
  Report Type: 
  Country: None (occurrence: None)
  Receive Date: 20090526
  Receipt Date: 20090519
  Transmission Date: 20091009
  Serious: Yes (Life-Threatening, Hospitalization)
  Sender: FDA-Public Use
  Company Number: US-PFIZER INC-2005113890

PATIENT
  Sex: Male
  Weight: 50 kg

DRUGS (15)
  1. MARAVIROC [Suspect]
     Indication: HIV INFECTION
     Dosage: UNK
     Route: 048
     Dates: start: 20050124, end: 20050801
  2. VALCYTE [Concomitant]
     Route: 048
     Dates: start: 20030929
  3. MEPRON [Concomitant]
     Route: 048
     Dates: start: 20011212
  4. DIFLUCAN [Concomitant]
     Route: 048
     Dates: start: 20011220, end: 20050804
  5. ZITHROMAX [Concomitant]
     Route: 048
     Dates: start: 20011212, end: 20050804
  6. VALTREX [Concomitant]
     Route: 048
     Dates: start: 20011212, end: 20050804
  7. CYTOVENE [Concomitant]
     Route: 047
     Dates: start: 20030601
  8. MOTRIN [Concomitant]
     Route: 048
     Dates: start: 20050201, end: 20050804
  9. TESTOSTERONE [Concomitant]
     Route: 030
     Dates: start: 20050418, end: 20050804
  10. OXANDRIN [Concomitant]
     Route: 048
     Dates: start: 20050526, end: 20050804
  11. PROCRIT [Concomitant]
     Route: 058
     Dates: start: 20050628, end: 20050804
  12. METHIONINE [Concomitant]
     Route: 048
     Dates: start: 20050714, end: 20050804
  13. VIRAMUNE [Concomitant]
     Route: 048
     Dates: start: 20050124, end: 20050801
  14. KALETRA [Concomitant]
     Route: 048
     Dates: start: 20050124, end: 20050801
  15. VIDEX [Concomitant]
     Route: 048
     Dates: start: 20050124, end: 20050801

REACTIONS (1)
  - ANAEMIA [None]
